FAERS Safety Report 5697263-1 (Version None)
Quarter: 2008Q2

REPORT INFORMATION
  Report Type: 
  Country: None (occurrence: None)
  Receive Date: 20080408
  Receipt Date: 20070802
  Transmission Date: 20081010
  Serious: No
  Sender: FDA-Public Use
  Company Number: US-BAYER-US-2007-028937

PATIENT
  Age: 36 Year
  Sex: Female
  Weight: 77 kg

DRUGS (5)
  1. YASMIN [Suspect]
     Indication: ORAL CONTRACEPTION
     Route: 048
  2. NEXIUM [Concomitant]
  3. FLONASE [Concomitant]
  4. VITAMIN CAP [Concomitant]
  5. FISH OIL [Concomitant]

REACTIONS (1)
  - DEPRESSED MOOD [None]
